FAERS Safety Report 15124335 (Version 2)
Quarter: 2019Q1

REPORT INFORMATION
  Report Type: Report from Study
  Country: FR (occurrence: FR)
  Receive Date: 20180710
  Receipt Date: 20190308
  Transmission Date: 20190417
  Serious: Yes (Hospitalization)
  Sender: FDA-Public Use
  Company Number: FR-ROCHE-2148862

PATIENT
  Age: 58 Year
  Sex: Female

DRUGS (4)
  1. BEVACIZUMAB. [Suspect]
     Active Substance: BEVACIZUMAB
     Indication: OVARIAN CANCER
     Dosage: 15MG/KG OR 10 MG/KG DURING THE INDUCTION PERIOD?ON 16/MAY/2018, SHE RECEIVED LAST DOSE OF BEVACIZUMA
     Route: 042
     Dates: start: 20180124
  2. CARBOPLATIN. [Suspect]
     Active Substance: CARBOPLATIN
     Indication: OVARIAN CANCER
     Dosage: ON 16/MAY/2018, SHE RECEIVED LAST DOSE OF CARBOPLATIN BEFORE THE EVENT.
     Route: 042
     Dates: start: 20180124
  3. DOXORUBICIN [Suspect]
     Active Substance: DOXORUBICIN
     Indication: OVARIAN CANCER
     Dosage: ON 16/MAY/2018, SHE RECEIVED LAST DOSE OF PEGYLATED LIPOSOMAL DOXORUBICIN HYDROCHLORIDE BEFORE THE E
     Route: 042
     Dates: start: 20180124
  4. ATEZOLIZUMAB. [Suspect]
     Active Substance: ATEZOLIZUMAB
     Indication: OVARIAN CANCER
     Dosage: 1200 MG X 6 CYCLES Q3WK OR 800MG X 6 CYCLES Q4WK?ON 30/MAY/2018, SHE RECEIVED LAST DOSE OF ATEZOLIZU
     Route: 042
     Dates: start: 20180124

REACTIONS (1)
  - Renal failure [Not Recovered/Not Resolved]

NARRATIVE: CASE EVENT DATE: 20180605
